FAERS Safety Report 21464476 (Version 1)
Quarter: 2022Q4

REPORT INFORMATION
  Report Type: Other
  Country: DE (occurrence: DE)
  Receive Date: 20221017
  Receipt Date: 20221017
  Transmission Date: 20230112
  Serious: Yes (Other)
  Sender: FDA-Public Use
  Company Number: DE-CELLTRION INC.-2022DE016461

PATIENT

DRUGS (15)
  1. RITUXIMAB [Suspect]
     Active Substance: RITUXIMAB
     Indication: Diffuse large B-cell lymphoma
     Dosage: FIFTH LINE WITH POLATUZUMAB AND BENDAMUSTINE
     Route: 065
     Dates: start: 20201110, end: 20201110
  2. RITUXIMAB [Suspect]
     Active Substance: RITUXIMAB
     Dosage: SECOND LINE WITH DHAP
     Route: 065
     Dates: start: 20200807, end: 20200829
  3. RITUXIMAB [Suspect]
     Active Substance: RITUXIMAB
     Dosage: SIXTH LINE WITH CHOP
     Route: 065
     Dates: start: 20201127, end: 20201127
  4. RITUXIMAB [Suspect]
     Active Substance: RITUXIMAB
     Dosage: FOURTH LINE WITH GEMOX
     Route: 065
     Dates: start: 20201022, end: 20201022
  5. RITUXIMAB [Suspect]
     Active Substance: RITUXIMAB
     Dosage: FIRST LINE WITH CHOP
     Route: 065
     Dates: start: 20191029, end: 20200213
  6. RITUXIMAB [Suspect]
     Active Substance: RITUXIMAB
     Dosage: THIRD LINE WITH ICE
     Route: 065
     Dates: start: 20200918, end: 20200918
  7. CARBOPLATIN [Suspect]
     Active Substance: CARBOPLATIN
     Indication: Diffuse large B-cell lymphoma
     Dosage: THIRD LINE WITH RITUXIMAB
     Route: 065
     Dates: start: 20200918, end: 20200918
  8. CISPLATIN\CYTARABINE\DEXAMETHASONE [Suspect]
     Active Substance: CISPLATIN\CYTARABINE\DEXAMETHASONE
     Indication: Diffuse large B-cell lymphoma
     Dosage: SECOND LINE WITH RITUXIMAB
     Route: 065
     Dates: start: 20200807, end: 20200829
  9. CYCLOPHOSPHAMIDE\DOXORUBICIN\PREDNISONE\VINCRISTINE [Suspect]
     Active Substance: CYCLOPHOSPHAMIDE\DOXORUBICIN\PREDNISONE\VINCRISTINE
     Indication: Diffuse large B-cell lymphoma
     Dosage: FIRST LINE WITH RITUXIMAB
     Route: 065
     Dates: start: 20191029, end: 20200213
  10. CYCLOPHOSPHAMIDE\DOXORUBICIN\PREDNISONE\VINCRISTINE [Suspect]
     Active Substance: CYCLOPHOSPHAMIDE\DOXORUBICIN\PREDNISONE\VINCRISTINE
     Dosage: FIRST LINE WITH RITUXIMAB
     Route: 065
     Dates: start: 20201127, end: 20201127
  11. POLIVY [Suspect]
     Active Substance: POLATUZUMAB VEDOTIN-PIIQ
     Indication: Diffuse large B-cell lymphoma
     Dosage: FIFTH LINE WITH RITUXIMAB AND BENDAMUSTINIE
     Route: 065
     Dates: start: 20201110, end: 20201110
  12. IFOSFAMIDE [Suspect]
     Active Substance: IFOSFAMIDE
     Indication: Diffuse large B-cell lymphoma
     Dosage: THIRD LINE WITH RITUXIMAB
     Route: 065
     Dates: start: 20200918, end: 20200918
  13. BENDAMUSTINE [Suspect]
     Active Substance: BENDAMUSTINE
     Indication: Diffuse large B-cell lymphoma
     Dosage: FIFTH LINE WITH POLATUZUMAB AND RITUXIMAB
     Route: 065
     Dates: start: 20201110, end: 20201110
  14. GEMFIBROZIL [Suspect]
     Active Substance: GEMFIBROZIL
     Indication: Diffuse large B-cell lymphoma
     Dosage: FOURTH LINE WITH RITUXIMAB
     Route: 065
     Dates: start: 20201022, end: 20201022
  15. NIVOLUMAB [Suspect]
     Active Substance: NIVOLUMAB
     Indication: Diffuse large B-cell lymphoma
     Route: 065
     Dates: start: 20211030, end: 20220812

REACTIONS (5)
  - Disease progression [Not Recovered/Not Resolved]
  - Glomerular filtration rate increased [Unknown]
  - Blood bilirubin increased [Unknown]
  - Aspartate aminotransferase increased [Unknown]
  - Alanine aminotransferase increased [Unknown]

NARRATIVE: CASE EVENT DATE: 20200501
